FAERS Safety Report 4615426-0 (Version None)
Quarter: 2005Q1

REPORT INFORMATION
  Report Type: 
  Country: None (occurrence: None)
  Receive Date: 20050317
  Receipt Date: 20050304
  Transmission Date: 20050727
  Serious: Yes (Death, Hospitalization)
  Sender: FDA-Public Use
  Company Number: 2005040472

PATIENT
  Age: 85 Year
  Sex: Male

DRUGS (2)
  1. NEURONTIN [Suspect]
     Indication: PAIN
     Dosage: ORAL
     Route: 048
  2. PROPACET 100 [Concomitant]

REACTIONS (3)
  - BRONCHITIS [None]
  - DIARRHOEA [None]
  - URINARY INCONTINENCE [None]
